FAERS Safety Report 17248703 (Version 1)
Quarter: 2020Q1

REPORT INFORMATION
  Report Type: Spontaneous
  Country: US (occurrence: US)
  Receive Date: 20200108
  Receipt Date: 20200108
  Transmission Date: 20200409
  Serious: No
  Sender: FDA-Public Use
  Company Number: US-BAYER-2020-002621

PATIENT
  Age: 70 Year
  Sex: Male

DRUGS (6)
  1. VITAMINS NOS [Concomitant]
     Active Substance: VITAMINS
     Dosage: UNK
  2. CLARITIN [Suspect]
     Active Substance: LORATADINE
     Indication: RHINORRHOEA
     Dosage: UNK UNK, QD
     Route: 048
     Dates: start: 20191220, end: 20200105
  3. CLARITIN [Suspect]
     Active Substance: LORATADINE
     Indication: TINNITUS
  4. MINERALS [Concomitant]
     Active Substance: MINERALS
     Dosage: UNK
  5. CLARITIN [Suspect]
     Active Substance: LORATADINE
     Indication: EAR INFECTION
  6. CLARITIN [Suspect]
     Active Substance: LORATADINE
     Indication: VERTIGO

REACTIONS (4)
  - Off label use [None]
  - Drug ineffective [Recovering/Resolving]
  - Therapeutic product effect delayed [Unknown]
  - Product use in unapproved indication [None]

NARRATIVE: CASE EVENT DATE: 20191220
